FAERS Safety Report 9175670 (Version 1)
Quarter: 2013Q1

REPORT INFORMATION
  Report Type: Report from Study
  Country: NL (occurrence: NL)
  Receive Date: 20130320
  Receipt Date: 20130320
  Transmission Date: 20140127
  Serious: Yes (Death)
  Sender: FDA-Public Use
  Company Number: NL-ROCHE-1203243

PATIENT
  Sex: 0
  Weight: 120 kg

DRUGS (4)
  1. TOCILIZUMAB [Suspect]
     Indication: RHEUMATOID ARTHRITIS
     Dosage: WEEK 0 AT 800 MG AND WEEK 4, 8 AND 12 AT 960 MG
     Route: 042
     Dates: start: 20120913
  2. TOCILIZUMAB [Suspect]
     Route: 042
     Dates: start: 20121010
  3. TOCILIZUMAB [Suspect]
     Route: 042
     Dates: start: 20121119
  4. TOCILIZUMAB [Suspect]
     Route: 042
     Dates: start: 20121228, end: 20130115

REACTIONS (1)
  - Death [Fatal]
